FAERS Safety Report 5196026-3 (Version None)
Quarter: 2006Q4

REPORT INFORMATION
  Report Type: 
  Country: None (occurrence: None)
  Receive Date: 20061227
  Receipt Date: 20061213
  Transmission Date: 20070319
  Serious: Yes (Other)
  Sender: FDA-Public Use
  Company Number: 2006AP001175

PATIENT
  Age: 50 Year
  Sex: Male

DRUGS (7)
  1. CARBAMAZEPINE [Suspect]
     Indication: BIPOLAR DISORDER
     Dosage: 900 MG; QHS
  2. TERBINAFINE HCL [Suspect]
     Indication: ONYCHOMYCOSIS
     Dosage: 250 MG; QD
  3. BUPROPION HCL [Concomitant]
  4. QUETIAPINE FUMARATE [Concomitant]
  5. HYDROCHLOROTHIAZIDE [Concomitant]
  6. OMEPRAZOLE [Concomitant]
  7. SILDENAFIL CITRATE [Concomitant]

REACTIONS (14)
  - ALANINE AMINOTRANSFERASE INCREASED [None]
  - ASPARTATE AMINOTRANSFERASE INCREASED [None]
  - CONDITION AGGRAVATED [None]
  - DIPLOPIA [None]
  - DIZZINESS [None]
  - DRUG INTERACTION [None]
  - DRUG LEVEL ABOVE THERAPEUTIC [None]
  - DRUG LEVEL INCREASED [None]
  - DRUG TOXICITY [None]
  - FALL [None]
  - HYPOAESTHESIA FACIAL [None]
  - MANIA [None]
  - NYSTAGMUS [None]
  - ONYCHOMYCOSIS [None]
